FAERS Safety Report 5465913-0 (Version None)
Quarter: 2007Q3

REPORT INFORMATION
  Report Type: 
  Country: None (occurrence: None)
  Receive Date: 20070924
  Receipt Date: 20070912
  Transmission Date: 20080115
  Serious: Yes (Other)
  Sender: FDA-Public Use
  Company Number: US-SANOFI-SYNTHELABO-A03200704934

PATIENT
  Sex: Female
  Weight: 72.6 kg

DRUGS (12)
  1. AMBIEN CR [Suspect]
     Indication: SLEEP DISORDER
     Route: 048
     Dates: start: 20060601
  2. AMBIEN CR [Suspect]
     Route: 048
     Dates: start: 20060701
  3. LEVOXYL [Concomitant]
     Route: 065
  4. PROTONIX [Concomitant]
     Route: 065
  5. ZYPREXA [Concomitant]
     Route: 065
  6. LITHIUM [Concomitant]
     Route: 065
  7. PARNATE [Concomitant]
     Route: 065
  8. GEODON [Concomitant]
     Route: 065
  9. DICYCLOMINE [Concomitant]
     Route: 065
  10. ESTRADIOL [Concomitant]
     Route: 065
  11. PREMARIN [Concomitant]
     Route: 065
  12. TEMAZEPAM [Concomitant]
     Route: 065

REACTIONS (4)
  - AMNESIA [None]
  - IMPAIRED DRIVING ABILITY [None]
  - ROAD TRAFFIC ACCIDENT [None]
  - SOMNAMBULISM [None]
